FAERS Safety Report 24961586 (Version 1)
Quarter: 2025Q1

REPORT INFORMATION
  Report Type: Spontaneous
  Country: US (occurrence: None)
  Receive Date: 20250212
  Receipt Date: 20250212
  Transmission Date: 20250409
  Serious: Yes (unspecified)
  Sender: FDA-CTU
  Company Number: None

PATIENT
  Age: 34 Year
  Sex: Male
  Weight: 83.25 kg

DRUGS (2)
  1. DIETARY SUPPLEMENT [Suspect]
     Active Substance: DIETARY SUPPLEMENT
     Indication: Arthralgia
     Dosage: FREQUENCY : DAILY;?
     Route: 048
     Dates: start: 20240120, end: 20240720
  2. DICLOFENAC [Suspect]
     Active Substance: DICLOFENAC

REACTIONS (8)
  - Gout [None]
  - Product use in unapproved indication [None]
  - Renal disorder [None]
  - Bone disorder [None]
  - Cartilage injury [None]
  - Arthritis [None]
  - Arthropathy [None]
  - Product use issue [None]

NARRATIVE: CASE EVENT DATE: 20240825
